FAERS Safety Report 6681629-7 (Version None)
Quarter: 2010Q2

REPORT INFORMATION
  Report Type: 
  Country: None (occurrence: None)
  Receive Date: 20100414
  Receipt Date: 20100405
  Transmission Date: 20101027
  Serious: Yes (Death, Other)
  Sender: FDA-Public Use
  Company Number: US-ELI_LILLY_AND_COMPANY-US201004001654

PATIENT
  Age: 51 Year
  Sex: Male

DRUGS (9)
  1. CYMBALTA [Suspect]
     Indication: DEPRESSION
     Dosage: 60 MG, DAILY (1/D)
     Dates: start: 20100201
  2. LYRICA [Concomitant]
  3. MEGACE [Concomitant]
  4. HYDROCHLOROTHIAZIDE [Concomitant]
  5. LISINOPRIL [Concomitant]
  6. XANAX [Concomitant]
  7. LORTAB [Concomitant]
  8. METHADONE HCL [Concomitant]
  9. DECADRON [Concomitant]

REACTIONS (2)
  - COMA [None]
  - MALIGNANT NEOPLASM PROGRESSION [None]
